FAERS Safety Report 5490314-9 (Version None)
Quarter: 2007Q4

REPORT INFORMATION
  Report Type: 
  Country: None (occurrence: None)
  Receive Date: 20071017
  Receipt Date: 20071002
  Transmission Date: 20080405
  Serious: Yes (Hospitalization, Other)
  Sender: FDA-Public Use
  Company Number: 2007BI016868

PATIENT
  Age: 28 Year
  Sex: Female

DRUGS (2)
  1. AVONEX [Suspect]
     Indication: MULTIPLE SCLEROSIS
     Dosage: 30 UG;QW;IM
     Route: 030
     Dates: start: 20060501
  2. ALEVE [Concomitant]

REACTIONS (11)
  - ABDOMINAL PAIN UPPER [None]
  - CONDITION AGGRAVATED [None]
  - CYSTITIS [None]
  - FALL [None]
  - GALLBLADDER DISORDER [None]
  - HYPOAESTHESIA [None]
  - INCONTINENCE [None]
  - MULTIPLE SCLEROSIS [None]
  - NAUSEA [None]
  - THROMBOSIS [None]
  - VOMITING [None]
